FAERS Safety Report 9324525 (Version 3)
Quarter: 2013Q3

REPORT INFORMATION
  Report Type: Spontaneous
  Country: US (occurrence: US)
  Receive Date: 20130603
  Receipt Date: 20130814
  Transmission Date: 20140515
  Serious: Yes (Other)
  Sender: FDA-Public Use
  Company Number: US-BAYER-2013-066264

PATIENT
  Age: 77 Year
  Sex: Male
  Weight: 83.9 kg

DRUGS (15)
  1. ALEVE CAPLET [Suspect]
     Indication: NEURALGIA
     Dosage: 1 DF, BID
     Route: 048
  2. ALEVE CAPLET [Interacting]
     Indication: TESTICULAR DISORDER
  3. BAYER GENUINE ASPIRIN ORIGINAL STRENGTH [Interacting]
     Indication: ISCHAEMIC HEART DISEASE PROPHYLAXIS
     Dosage: 1 DF, QD
     Route: 048
     Dates: end: 20120601
  4. BAYER GENUINE ASPIRIN ORIGINAL STRENGTH [Interacting]
     Indication: ISCHAEMIC HEART DISEASE PROPHYLAXIS
     Dosage: 1 DF, QD
     Route: 048
     Dates: start: 20120519, end: 20120601
  5. PLAVIX [Interacting]
  6. TYLENOL [PARACETAMOL] [Concomitant]
  7. GEMFIBROZIL [Concomitant]
  8. METFORMIN [Concomitant]
  9. GABAPENTIN [Concomitant]
  10. GLUCOSAMINE [GLUCOSAMINE] [Concomitant]
  11. NITROGLYCERINE [Concomitant]
     Dosage: UNK UNK, PRN
  12. LACTAID [Concomitant]
  13. BAYER ASPIRIN REGIMEN ADULT LOW STRENGTH [Interacting]
     Indication: ISCHAEMIC HEART DISEASE PROPHYLAXIS
     Dosage: 1 DF, UNK
     Route: 048
  14. CHONDROITIN [Concomitant]
  15. AMITRIPTYLINE [Concomitant]

REACTIONS (4)
  - Rectal haemorrhage [Recovered/Resolved]
  - Incorrect drug administration duration [None]
  - Rectal haemorrhage [Recovered/Resolved]
  - Haemorrhage [None]
